FAERS Safety Report 7255232-4 (Version None)
Quarter: 2011Q1

REPORT INFORMATION
  Report Type: 
  Country: None (occurrence: None)
  Receive Date: 20110129
  Receipt Date: 20100325
  Transmission Date: 20110831
  Serious: No
  Sender: FDA-Public Use
  Company Number: US-ABBOTT-10P-163-0634653-00

PATIENT
  Sex: Female
  Weight: 86.26 kg

DRUGS (8)
  1. POTASSIUM [Concomitant]
     Indication: MINERAL SUPPLEMENTATION
  2. CANASA [Concomitant]
     Indication: CROHN'S DISEASE
     Route: 054
  3. METOPROLOL [Concomitant]
     Indication: HYPERTENSION
  4. HUMIRA [Suspect]
     Indication: CROHN'S DISEASE
     Route: 058
     Dates: start: 20090524
  5. HYDROCHLOROTHIAZIDE [Concomitant]
     Indication: HYPERTENSION
  6. PREVACID [Concomitant]
     Indication: PRODUCT USED FOR UNKNOWN INDICATION
  7. IMURAN [Concomitant]
     Indication: CROHN'S DISEASE
     Dosage: WEANING
  8. PENTASA [Concomitant]
     Indication: CROHN'S DISEASE

REACTIONS (2)
  - RHINORRHOEA [None]
  - NASAL CONGESTION [None]
